FAERS Safety Report 4594837-6 (Version None)
Quarter: 2005Q1

REPORT INFORMATION
  Report Type: 
  Country: None (occurrence: None)
  Receive Date: 20050223
  Receipt Date: 20050131
  Transmission Date: 20050727
  Serious: Yes (Other)
  Sender: FDA-Public Use
  Company Number: MED000017

PATIENT
  Age: 18 Year
  Sex: Female
  Weight: 96.1626 kg

DRUGS (2)
  1. SODIUM CHLORIDE 0.9% [Suspect]
     Indication: PLASMAPHERESIS
     Dosage: INTRAVENOUS
     Route: 042
     Dates: start: 20050131, end: 20050131
  2. SODIUM CITRATE [Suspect]
     Dosage: ONCE
     Dates: start: 20050131, end: 20050131

REACTIONS (5)
  - BLOOD PRESSURE DIASTOLIC DECREASED [None]
  - DYSPEPSIA [None]
  - HEART RATE INCREASED [None]
  - PRURITUS [None]
  - RESPIRATORY RATE INCREASED [None]
